FAERS Safety Report 23938436 (Version 2)
Quarter: 2024Q4

REPORT INFORMATION
  Report Type: Spontaneous
  Country: BR (occurrence: BR)
  Receive Date: 20240604
  Receipt Date: 20241104
  Transmission Date: 20250115
  Serious: Yes (Disabling)
  Sender: AMERICAN REGENT
  Company Number: BR-AMERICAN REGENT INC-2024002093

PATIENT
  Age: 47 Year
  Sex: Female
  Weight: 65 kg

DRUGS (7)
  1. FERINJECT [Suspect]
     Active Substance: FERRIC CARBOXYMALTOSE
     Indication: Serum ferritin decreased
     Dosage: SINGLE DOSE; 2 AMPOULES; DATE OF THE LAST ADMINISTRATION BEFORE THE AE: 17-MAY-2024 (2 DOSAGE FORMS,
     Dates: start: 20240517, end: 20240517
  2. BOTOX [Suspect]
     Active Substance: ONABOTULINUMTOXINA
     Indication: Product used for unknown indication
     Dosage: UNK
     Route: 065
     Dates: start: 20240517, end: 20240517
  3. LEVOTHYROXINE [Concomitant]
     Active Substance: LEVOTHYROXINE
     Indication: Autoimmune thyroiditis
     Dosage: STARTED 20 YEARS AGO. 1 UNIT ONCE A DAY IN THE MORNING ON AN EMPTY STOMACH (137 MCG,1 IN 1 D)
     Route: 048
     Dates: start: 2004
  4. FISH OIL\OMEGA-3 FATTY ACIDS [Concomitant]
     Active Substance: FISH OIL\OMEGA-3 FATTY ACIDS
     Indication: Vitamin supplementation
     Dosage: UNK
     Route: 065
  5. TESTOSTERONE [Concomitant]
     Active Substance: TESTOSTERONE
     Indication: Supplementation therapy
     Dosage: (1 IN 1 D)
     Route: 062
  6. COENZYME Q10 [Concomitant]
     Active Substance: DIETARY SUPPLEMENT\UBIDECARENONE
     Indication: Vitamin supplementation
     Dosage: UNK
     Route: 065
  7. IRON [Concomitant]
     Active Substance: IRON
     Indication: Serum ferritin decreased
     Dosage: ORALLY, 2 TABLETS PER WEEK (2 IN 1 WK)
     Route: 048

REACTIONS (3)
  - Bedridden [Recovered/Resolved]
  - Influenza like illness [Recovered/Resolved]
  - Skin discolouration [Recovering/Resolving]

NARRATIVE: CASE EVENT DATE: 20240518
